FAERS Safety Report 9543690 (Version 1)
Quarter: 2013Q2

REPORT INFORMATION
  Report Type: Spontaneous
  Country: US (occurrence: None)
  Receive Date: 20130530
  Receipt Date: 20130530
  Transmission Date: 20140414
  Serious: Yes (Other)
  Sender: FDA-Public Use
  Company Number: 1302USA010455

PATIENT
  Sex: Male

DRUGS (1)
  1. JANUMET [Suspect]
     Indication: TYPE 2 DIABETES MELLITUS
     Route: 048
     Dates: start: 201102

REACTIONS (4)
  - Inappropriate schedule of drug administration [None]
  - Weight decreased [None]
  - Pancreatitis [None]
  - Pancreatitis chronic [None]
